FAERS Safety Report 8260627-6 (Version None)
Quarter: 2012Q2

REPORT INFORMATION
  Report Type: 
  Country: None (occurrence: None)
  Receive Date: 20120404
  Receipt Date: 20120326
  Transmission Date: 20120825
  Serious: Yes (Death, Hospitalization)
  Sender: FDA-Public Use
  Company Number: PT-BAXTER-2009BH011750

PATIENT
  Age: 48 Year
  Sex: Female

DRUGS (3)
  1. PHYSIONEAL 40 GLUCOSE 2,27% P/V / 22,7 MG/ML [Suspect]
     Route: 033
  2. PHYSIONEAL 40 GLUCOSE 1,36% P/V / 13,6 MG/ML [Suspect]
     Route: 033
  3. EXTRANEAL [Suspect]
     Route: 033

REACTIONS (3)
  - HYPERKALAEMIA [None]
  - MALAISE [None]
  - ACUTE MYOCARDIAL INFARCTION [None]
